FAERS Safety Report 9416720 (Version 2)
Quarter: 2013Q3

REPORT INFORMATION
  Report Type: Spontaneous
  Country: US (occurrence: US)
  Receive Date: 20130724
  Receipt Date: 20130829
  Transmission Date: 20140515
  Serious: Yes (Death)
  Sender: FDA-Public Use
  Company Number: US-PFIZER INC-2013215010

PATIENT
  Age: 70 Year
  Sex: Male
  Weight: 104 kg

DRUGS (3)
  1. NORVASC [Suspect]
     Dosage: UNK
  2. LIPITOR [Suspect]
     Dosage: UNK
  3. GLUCOTROL [Suspect]
     Dosage: UNK

REACTIONS (1)
  - Death [Fatal]
